FAERS Safety Report 5118575-6 (Version None)
Quarter: 2006Q3

REPORT INFORMATION
  Report Type: 
  Country: None (occurrence: None)
  Receive Date: 20060927
  Receipt Date: 20060914
  Transmission Date: 20061208
  Serious: Yes (Other)
  Sender: FDA-Public Use
  Company Number: 2006102068

PATIENT
  Sex: Female

DRUGS (2)
  1. REVATIO [Suspect]
     Indication: PULMONARY HYPERTENSION
     Dosage: SEE BLOCK 5 (4 IN 1 D)
     Dates: start: 20030101
  2. ILOPROST (ILOPROST) [Concomitant]

REACTIONS (2)
  - PROCEDURAL COMPLICATION [None]
  - PULMONARY HYPERTENSION [None]
